FAERS Safety Report 14986974 (Version 1)
Quarter: 2018Q2

REPORT INFORMATION
  Report Type: Spontaneous
  Country: IT (occurrence: IT)
  Receive Date: 20180608
  Receipt Date: 20180608
  Transmission Date: 20180711
  Serious: Yes (Hospitalization)
  Sender: FDA-Public Use
  Company Number: IT-AMGEN-ITASP2018049736

PATIENT
  Age: 61 Year
  Sex: Male

DRUGS (10)
  1. METHYLPREDNISOLONE. [Concomitant]
     Active Substance: METHYLPREDNISOLONE
     Dosage: 40 MG, DAILY (HIGHER DOSE)
     Dates: start: 2016
  2. CASPOFUNGIN [Concomitant]
     Active Substance: CASPOFUNGIN
     Indication: ANTIFUNGAL PROPHYLAXIS
     Dosage: UNK
     Dates: start: 2016
  3. TACROLIMUS. [Concomitant]
     Active Substance: TACROLIMUS
     Dosage: 0.04 MG/KG, DAILY (LOWER DOSE)
     Dates: start: 2016
  4. DAPTOMYCIN. [Concomitant]
     Active Substance: DAPTOMYCIN
     Indication: ANTIBIOTIC PROPHYLAXIS
     Dosage: UNK
     Dates: start: 2016
  5. MEROPENEM. [Concomitant]
     Active Substance: MEROPENEM
     Indication: ANTIBIOTIC PROPHYLAXIS
     Dosage: UNK
     Dates: start: 2016
  6. METHYLPREDNISOLONE. [Concomitant]
     Active Substance: METHYLPREDNISOLONE
     Indication: IMMUNOSUPPRESSANT DRUG THERAPY
     Dosage: 20 MG, DAILY (POSTOPERATIVE DAY (POD) 1)
     Dates: start: 201611
  7. ETANERCEPT [Suspect]
     Active Substance: ETANERCEPT
     Indication: IMMUNOSUPPRESSANT DRUG THERAPY
     Dosage: 50 MG, WEEKLY (ONCE PER WEEK)
     Route: 058
     Dates: start: 2016
  8. TACROLIMUS. [Concomitant]
     Active Substance: TACROLIMUS
     Indication: IMMUNOSUPPRESSANT DRUG THERAPY
     Dosage: 0.04 MG/KG, DAILY (LOWER DOSE)
     Dates: start: 2016
  9. EVEROLIMUS. [Concomitant]
     Active Substance: EVEROLIMUS
     Indication: IMMUNOSUPPRESSANT DRUG THERAPY
     Dosage: 3 MG, DAILY (FROM POD7, POD9 TREATMENT WITH EVEROLIMUS WAS STOPPED)
     Dates: start: 2016, end: 2016
  10. ANTITHYMOCYTE IMMUNOGLOBULIN [Concomitant]
     Active Substance: THYMOCYTE IMMUNE GLOBULIN NOS
     Dosage: 1.5 MG/KG, DAILY
     Dates: start: 2016

REACTIONS (4)
  - Enterococcal infection [Unknown]
  - Aspergillus infection [Unknown]
  - Product use in unapproved indication [Unknown]
  - Cytomegalovirus infection [Unknown]
